FAERS Safety Report 17222401 (Version 1)
Quarter: 2020Q1

REPORT INFORMATION
  Report Type: Spontaneous
  Country: DK (occurrence: DK)
  Receive Date: 20200101
  Receipt Date: 20200101
  Transmission Date: 20200409
  Serious: Yes (Hospitalization)
  Sender: FDA-Public Use
  Company Number: DK-BAXTER-2019BAX026203

PATIENT
  Age: 60 Year
  Sex: Female

DRUGS (5)
  1. PREDNISOLONE. [Concomitant]
     Active Substance: PREDNISOLONE
     Indication: IMMUNOSUPPRESSION
     Dosage: POTENCY: 2.45 MG
     Route: 048
     Dates: start: 20191018
  2. SULFAMETHOXAZOLE WITH TRIMETHOPRIM [Suspect]
     Active Substance: SULFAMETHOXAZOLE\TRIMETHOPRIM
     Indication: PNEUMOCYSTIS JIROVECII PNEUMONIA
     Dosage: ^SAD^, SUBSEQUENTLY DISCONTINUED AND ESTABLISHED AS A WARNING, STRENGTH: 400 MG + 80 MG
     Route: 048
     Dates: start: 20191023, end: 20191125
  3. MAREVAN [Concomitant]
     Active Substance: WARFARIN SODIUM
     Indication: ANTICOAGULANT THERAPY
     Dosage: DOSE: DOSAGE ACCORDING TO WRITTEN INSTRUCTIONS, POTENCY: 2.5 MG
     Route: 048
     Dates: start: 20150818
  4. PANTOPRAZOLE [Concomitant]
     Active Substance: PANTOPRAZOLE
     Indication: GASTROOESOPHAGEAL REFLUX DISEASE
     Dosage: POTENCY: 40 MG
     Route: 048
     Dates: start: 20170921
  5. SENDOXAN [Suspect]
     Active Substance: CYCLOPHOSPHAMIDE
     Indication: NEPHROPATHY
     Dosage: SUBSEQUENTLY DISCONTINUED AND ESTABLISHED AS A WARNING, POTENCY: 50 MG
     Route: 048
     Dates: start: 20191023, end: 20191125

REACTIONS (3)
  - Chromaturia [Unknown]
  - Hepatic failure [Recovering/Resolving]
  - Abdominal pain [Unknown]

NARRATIVE: CASE EVENT DATE: 201911
